FAERS Safety Report 7729389-2 (Version None)
Quarter: 2011Q3

REPORT INFORMATION
  Report Type: 
  Country: None (occurrence: None)
  Receive Date: 20110831
  Receipt Date: 20110831
  Transmission Date: 20111222
  Serious: Yes (Hospitalization)
  Sender: FDA-Public Use
  Company Number: None

PATIENT

DRUGS (1)
  1. VANCOMYCIN [Suspect]
     Indication: OSTEOMYELITIS
     Dosage: 2 GM BID IV
     Route: 042
     Dates: start: 20110209, end: 20110220

REACTIONS (4)
  - PYREXIA [None]
  - URTICARIA [None]
  - LEUKOPENIA [None]
  - TACHYCARDIA [None]
